FAERS Safety Report 7691023-8 (Version None)
Quarter: 2011Q3

REPORT INFORMATION
  Report Type: 
  Country: None (occurrence: None)
  Receive Date: 20110818
  Receipt Date: 20110815
  Transmission Date: 20111222
  Serious: Yes (Other)
  Sender: FDA-Public Use
  Company Number: US-ROCHE-743270

PATIENT
  Sex: Female
  Weight: 66.7 kg

DRUGS (14)
  1. ACCUTANE [Suspect]
     Indication: ACNE
     Route: 048
     Dates: start: 19930419
  2. ACCUTANE [Suspect]
     Route: 048
     Dates: start: 19970514
  3. ACCUTANE [Suspect]
     Route: 048
     Dates: start: 20030527
  4. ALBUTEROL SULFATE AUTOHALER [Concomitant]
     Indication: ASTHMA
  5. ACCUTANE [Suspect]
     Route: 048
     Dates: start: 19940415
  6. ACCUTANE [Suspect]
     Route: 048
     Dates: start: 20020701
  7. XANAX [Concomitant]
     Indication: ANXIETY
  8. ACCUTANE [Suspect]
     Route: 048
     Dates: start: 19950804
  9. ACCUTANE [Suspect]
     Route: 048
     Dates: start: 19960101
  10. ACCUTANE [Suspect]
     Route: 048
     Dates: end: 20040301
  11. IBUPROFEN [Concomitant]
  12. ALLEGRA [Concomitant]
  13. ACCUTANE [Suspect]
     Route: 048
  14. AMNESTEEM [Suspect]
     Indication: ACNE
     Route: 065
     Dates: start: 20030611, end: 20030930

REACTIONS (15)
  - STRESS [None]
  - DEPRESSION [None]
  - MYALGIA [None]
  - LIP DRY [None]
  - EPISTAXIS [None]
  - ARTHRALGIA [None]
  - PSORIASIS [None]
  - MUSCULOSKELETAL STIFFNESS [None]
  - DRY SKIN [None]
  - BLOOD CHOLESTEROL INCREASED [None]
  - COLITIS ULCERATIVE [None]
  - INFLAMMATORY BOWEL DISEASE [None]
  - DIVERTICULUM [None]
  - ECZEMA NUMMULAR [None]
  - SUNBURN [None]
